FAERS Safety Report 5522237-0 (Version None)
Quarter: 2007Q4

REPORT INFORMATION
  Report Type: 
  Country: None (occurrence: None)
  Receive Date: 20071120
  Receipt Date: 20071109
  Transmission Date: 20080405
  Serious: Yes (Hospitalization)
  Sender: FDA-Public Use
  Company Number: JP-JNJFOC-20070902720

PATIENT
  Sex: Male

DRUGS (6)
  1. CRAVIT [Suspect]
     Indication: PNEUMONIA
     Route: 065
  2. CRAVIT [Suspect]
     Indication: LOCALISED INFECTION
     Route: 065
  3. SUNRYTHM [Suspect]
     Indication: ARRHYTHMIA
     Route: 065
  4. MUCODYNE [Suspect]
     Indication: PNEUMONIA
     Route: 065
  5. UNICON [Suspect]
     Indication: BRONCHITIS
     Route: 065
  6. MECLOCELIN [Suspect]
     Indication: PNEUMONIA
     Route: 065

REACTIONS (8)
  - BLOOD ALKALINE PHOSPHATASE INCREASED [None]
  - BLOOD GLUCOSE INCREASED [None]
  - BLOOD LACTATE DEHYDROGENASE INCREASED [None]
  - DRUG ERUPTION [None]
  - EOSINOPHIL PERCENTAGE INCREASED [None]
  - PLEURAL EFFUSION [None]
  - PNEUMOTHORAX [None]
  - RASH GENERALISED [None]
